FAERS Safety Report 18970207 (Version 2)
Quarter: 2021Q3

REPORT INFORMATION
  Report Type: Report from Study
  Country: None (occurrence: FR)
  Receive Date: 20210304
  Receipt Date: 20210910
  Transmission Date: 20211014
  Serious: Yes (Hospitalization)
  Sender: FDA-Public Use
  Company Number: FR-ABBVIE-20P-056-3649038-00

PATIENT
  Age: 7 Year
  Sex: Female
  Weight: 16.5 kg

DRUGS (20)
  1. LOVENOX [Concomitant]
     Active Substance: ENOXAPARIN SODIUM
     Indication: THROMBOSIS
     Dosage: 1000 UI/J
     Route: 042
     Dates: start: 20201013
  2. FORTUM [Concomitant]
     Active Substance: CEFTAZIDIME
     Route: 042
     Dates: start: 20200906
  3. ZOVIRAX [Concomitant]
     Active Substance: ACYCLOVIR
     Indication: HERPES SIMPLEX
     Route: 042
     Dates: start: 20201021
  4. FORTUM [Concomitant]
     Active Substance: CEFTAZIDIME
     Indication: FEBRILE BONE MARROW APLASIA
     Route: 042
     Dates: start: 20200808, end: 20200816
  5. AMIKLIN [Concomitant]
     Active Substance: AMIKACIN SULFATE
     Route: 042
     Dates: start: 20200808, end: 20200810
  6. ELECTROLYTES WITH HYDRATES OF CARBON [Concomitant]
     Indication: PROPHYLAXIS
     Route: 042
     Dates: start: 20200706, end: 20200713
  7. VENETOCLAX. [Suspect]
     Active Substance: VENETOCLAX
     Indication: RECURRENT CANCER
     Route: 048
     Dates: start: 20200706, end: 20200706
  8. TOPOTECAN HYDROCHLORIDE. [Suspect]
     Active Substance: TOPOTECAN HYDROCHLORIDE
     Indication: RECURRENT CANCER
     Dosage: DAYS 1?5 OF EACH 21?DAY CYCLE
     Route: 042
     Dates: start: 20210119
  9. FORTUM [Concomitant]
     Active Substance: CEFTAZIDIME
     Indication: FEBRILE NEUTROPENIA
     Route: 042
     Dates: start: 20200718, end: 20200726
  10. INNOHEP [Concomitant]
     Active Substance: TINZAPARIN SODIUM
     Indication: THROMBOSIS PROPHYLAXIS
     Route: 042
     Dates: start: 20200718, end: 20200718
  11. CYCLOPHOSPHAMIDE. [Suspect]
     Active Substance: CYCLOPHOSPHAMIDE
     Indication: RECURRENT CANCER
     Dosage: DAYS 1?5 OF 21?DAY CYCLE
     Route: 042
     Dates: start: 20210119
  12. INNOHEP [Concomitant]
     Active Substance: TINZAPARIN SODIUM
     Route: 058
     Dates: start: 20200717
  13. ATARAX [Concomitant]
     Active Substance: HYDROXYZINE HYDROCHLORIDE
     Indication: PROPHYLAXIS OF NAUSEA AND VOMITING
     Dosage: DURING CHEMOTHERAPY
     Route: 042
     Dates: start: 20200707
  14. AMIKLIN [Concomitant]
     Active Substance: AMIKACIN SULFATE
     Indication: FEBRILE NEUTROPENIA
     Route: 042
     Dates: start: 20200719, end: 20200721
  15. AMIKLIN [Concomitant]
     Active Substance: AMIKACIN SULFATE
     Route: 042
     Dates: start: 20200906
  16. VENETOCLAX. [Suspect]
     Active Substance: VENETOCLAX
     Indication: REFRACTORY CANCER
     Dosage: DAYS 1?10 OF EACH 21?DAY CYCLE
     Route: 048
     Dates: start: 20200707
  17. SPASFON LYOC [Concomitant]
     Active Substance: PHLOROGLUCINOL
     Indication: MUSCLE SPASTICITY
     Route: 048
     Dates: start: 20200828
  18. CYCLOPHOSPHAMIDE. [Suspect]
     Active Substance: CYCLOPHOSPHAMIDE
     Indication: REFRACTORY CANCER
     Dosage: DAYS 1?5 OF 21?DAY CYCLE
     Route: 042
     Dates: start: 20200708, end: 20201106
  19. TOPOTECAN HYDROCHLORIDE. [Suspect]
     Active Substance: TOPOTECAN HYDROCHLORIDE
     Indication: REFRACTORY CANCER
     Dosage: DAYS 1?5 OF EACH 21?DAY CYCLE
     Route: 042
     Dates: start: 20200708, end: 20201106
  20. INNOHEP [Concomitant]
     Active Substance: TINZAPARIN SODIUM
     Indication: ANTICOAGULANT THERAPY
     Route: 058
     Dates: start: 20200706, end: 20200713

REACTIONS (1)
  - Febrile neutropenia [Recovered/Resolved]

NARRATIVE: CASE EVENT DATE: 20201110
